FAERS Safety Report 24130087 (Version 2)
Quarter: 2024Q3

REPORT INFORMATION
  Report Type: Spontaneous
  Country: US (occurrence: US)
  Receive Date: 20240724
  Receipt Date: 20240809
  Transmission Date: 20241016
  Serious: Yes (Other)
  Sender: BIOGEN
  Company Number: US-BIOGEN-2024BI01274677

PATIENT
  Sex: Female
  Weight: 53.118 kg

DRUGS (4)
  1. TECFIDERA [Suspect]
     Active Substance: DIMETHYL FUMARATE
     Indication: Multiple sclerosis
     Route: 050
     Dates: start: 2023
  2. VITAMIN C [Concomitant]
     Active Substance: ASCORBIC ACID
     Indication: Product used for unknown indication
     Route: 050
  3. ZYRTEC [Concomitant]
     Active Substance: CETIRIZINE HYDROCHLORIDE
     Indication: Product used for unknown indication
     Route: 050
  4. VITAMIN D [Concomitant]
     Active Substance: VITAMIN D NOS
     Indication: Product used for unknown indication
     Dosage: 1000 IU
     Route: 050

REACTIONS (4)
  - Suicidal ideation [Unknown]
  - Major depression [Unknown]
  - Depression [Unknown]
  - Social anxiety disorder [Unknown]
